FAERS Safety Report 7203115-8 (Version None)
Quarter: 2010Q4

REPORT INFORMATION
  Report Type: 
  Country: None (occurrence: None)
  Receive Date: 20101229
  Receipt Date: 20101222
  Transmission Date: 20110411
  Serious: Yes (Other)
  Sender: FDA-Public Use
  Company Number: CA-MERCK-1012USA03644

PATIENT
  Sex: Female

DRUGS (1)
  1. FOSAMAX [Suspect]
     Route: 048

REACTIONS (6)
  - BONE GRAFT [None]
  - FEMUR FRACTURE [None]
  - FRACTURE REDUCTION [None]
  - IMPAIRED HEALING [None]
  - INTRAMEDULLARY ROD INSERTION [None]
  - PAIN IN EXTREMITY [None]
